FAERS Safety Report 8605871 (Version 4)
Quarter: 2012Q4

REPORT INFORMATION
  Report Type: Report from Study
  Country: ES (occurrence: ES)
  Receive Date: 20120608
  Receipt Date: 20120928
  Transmission Date: 20130627
  Serious: Yes (Hospitalization)
  Sender: FDA-Public Use
  Company Number: ES-ROCHE-1076004

PATIENT
  Age: 58 Year
  Sex: Female
  Weight: 66 kg

DRUGS (2)
  1. ZELBORAF [Suspect]
     Indication: MALIGNANT MELANOMA
     Dosage: last dose prior to SAE: 01/Jun/2012
     Route: 048
     Dates: start: 20120521, end: 20120602
  2. ZELBORAF [Suspect]
     Route: 065
     Dates: start: 20120613

REACTIONS (1)
  - Gastric ulcer [Recovered/Resolved]
